FAERS Safety Report 10819535 (Version 1)
Quarter: 2015Q1

REPORT INFORMATION
  Report Type: Report from Study
  Country: US (occurrence: US)
  Receive Date: 20150218
  Receipt Date: 20150218
  Transmission Date: 20150721
  Serious: No
  Sender: FDA-Public Use
  Company Number: US-ABBVIE-14K-163-1295399-00

PATIENT
  Age: 56 Year
  Sex: Female
  Weight: 97.61 kg

DRUGS (5)
  1. TRAMADOL [Concomitant]
     Active Substance: TRAMADOL
     Indication: PAIN
  2. HUMIRA [Suspect]
     Active Substance: ADALIMUMAB
     Indication: ANKYLOSING SPONDYLITIS
     Route: 058
     Dates: start: 2011, end: 201409
  3. UNKNOWN MEDICATION [Concomitant]
     Active Substance: UNSPECIFIED INGREDIENT
     Indication: DEPRESSION
  4. SULFASALAZINE. [Concomitant]
     Active Substance: SULFASALAZINE
     Indication: INFLAMMATION
  5. FENTANYL. [Concomitant]
     Active Substance: FENTANYL
     Indication: PAIN

REACTIONS (3)
  - Asthenia [Not Recovered/Not Resolved]
  - Drug ineffective [Not Recovered/Not Resolved]
  - Pain [Not Recovered/Not Resolved]

NARRATIVE: CASE EVENT DATE: 201405
